FAERS Safety Report 10178085 (Version 1)
Quarter: 2014Q2

REPORT INFORMATION
  Report Type: Spontaneous
  Country: JP (occurrence: JP)
  Receive Date: 20140518
  Receipt Date: 20140518
  Transmission Date: 20141212
  Serious: Yes (Other)
  Sender: FDA-Public Use
  Company Number: JP-009507513-1405JPN005351

PATIENT
  Sex: 0

DRUGS (1)
  1. TEMODAL [Suspect]
     Indication: GLIOBLASTOMA MULTIFORME
     Dosage: 75 MG/M2/1 DAY
     Route: 065

REACTIONS (7)
  - Meningitis [Unknown]
  - Bone marrow failure [Unknown]
  - Pneumonia [Unknown]
  - Hepatic enzyme [Unknown]
  - Hypoalbuminaemia [Unknown]
  - Cognitive disorder [Unknown]
  - Fatigue [Unknown]
